FAERS Safety Report 9604369 (Version 2)
Quarter: 2013Q4

REPORT INFORMATION
  Report Type: Report from Study
  Country: DE (occurrence: DE)
  Receive Date: 20131008
  Receipt Date: 20131011
  Transmission Date: 20140711
  Serious: Yes (Death, Life-Threatening, Other)
  Sender: FDA-Public Use
  Company Number: PHHO2013DE012934

PATIENT
  Sex: 0

DRUGS (8)
  1. CGS 20267 [Suspect]
     Indication: BREAST CANCER
     Dosage: 2.5 MG, QD
     Route: 048
  2. FOLFOX-4 (FLUOROURACIL, FOLINIC ACID, OXALIPLATIN) [Concomitant]
     Dates: start: 20121001, end: 20121001
  3. ASS [Concomitant]
     Dosage: 100 MG, UNK
     Route: 048
     Dates: start: 20120101
  4. CLOPIDOGREL [Concomitant]
     Dosage: 75 MG, UNK
     Route: 048
     Dates: start: 20120101
  5. METOPROLOL [Concomitant]
     Indication: PROPHYLAXIS
     Dosage: 4.75 MG, UNK
     Route: 048
     Dates: start: 20120101
  6. INEGY [Concomitant]
     Indication: PROPHYLAXIS
     Dosage: 1 DF, (10/40)
     Route: 048
     Dates: start: 20120101
  7. RAMIPRIL [Concomitant]
     Indication: PROPHYLAXIS
     Dosage: 2.5 MG, UNK
     Route: 048
     Dates: start: 20120601
  8. OMEPRAZOL [Concomitant]
     Dosage: 40 MG, UNK
     Route: 048
     Dates: start: 20120101

REACTIONS (4)
  - Sepsis [Fatal]
  - Colon cancer [Unknown]
  - Second primary malignancy [Unknown]
  - Gastroenteritis [Unknown]
